FAERS Safety Report 6642900-8 (Version None)
Quarter: 2010Q1

REPORT INFORMATION
  Report Type: 
  Country: None (occurrence: None)
  Receive Date: 20100319
  Receipt Date: 20100305
  Transmission Date: 20100710
  Serious: Yes (Disabling, Other)
  Sender: FDA-Public Use
  Company Number: US-ELI_LILLY_AND_COMPANY-US201003002861

PATIENT
  Sex: Male

DRUGS (7)
  1. CIALIS [Suspect]
     Indication: ERECTILE DYSFUNCTION
     Dosage: 20 MG, AS NEEDED
  2. CIALIS [Suspect]
     Dosage: 2.5 MG, DAILY (1/D)
     Dates: start: 20090101, end: 20091101
  3. GABAPENTIN [Concomitant]
     Dosage: UNK, UNKNOWN
  4. DIAZEPAM [Concomitant]
  5. IBUPROFEN [Concomitant]
  6. TIZANIDINE HCL [Concomitant]
  7. HYDROCODONE [Concomitant]

REACTIONS (5)
  - ABASIA [None]
  - BALANCE DISORDER [None]
  - FALL [None]
  - FEELING ABNORMAL [None]
  - HEART RATE DECREASED [None]
